FAERS Safety Report 7212835-0 (Version None)
Quarter: 2011Q1

REPORT INFORMATION
  Report Type: 
  Country: None (occurrence: None)
  Receive Date: 20110106
  Receipt Date: 20101228
  Transmission Date: 20110831
  Serious: Yes (Hospitalization, Other)
  Sender: FDA-Public Use
  Company Number: ES-ELI_LILLY_AND_COMPANY-ES201012006322

PATIENT
  Sex: Female

DRUGS (5)
  1. FORTEO [Suspect]
     Indication: OSTEOPOROSIS
     Dosage: 20 UG, DAILY (1/D)
     Route: 058
     Dates: start: 20100928
  2. TRANSDERM [Concomitant]
     Indication: PAIN
     Dosage: 35 MG, UNKNOWN
     Route: 062
  3. CALCIO [Concomitant]
     Indication: BONE DISORDER
     Dosage: UNK, 2/D
     Route: 048
  4. ESERTIA [Concomitant]
     Dosage: UNK, DAILY (1/D)
     Route: 048
  5. SEROQUEL [Concomitant]
     Indication: COGNITIVE DISORDER

REACTIONS (3)
  - FALL [None]
  - ANKLE FRACTURE [None]
  - PELVIC FRACTURE [None]
